FAERS Safety Report 10262010 (Version 2)
Quarter: 2014Q2

REPORT INFORMATION
  Report Type: Spontaneous
  Country: AU (occurrence: AU)
  Receive Date: 20140626
  Receipt Date: 20140626
  Transmission Date: 20141212
  Serious: Yes (Disabling, Other)
  Sender: FDA-Public Use
  Company Number: AU-PFIZER INC-2014083855

PATIENT
  Age: 71 Year
  Sex: Female
  Weight: 50 kg

DRUGS (9)
  1. VFEND [Suspect]
     Indication: BRONCHOPULMONARY ASPERGILLOSIS ALLERGIC
     Dosage: 200 MG, 2X/DAY
     Route: 048
     Dates: start: 20140122, end: 20140223
  2. LOVAN [Concomitant]
     Dosage: 20 MG, 2X/DAY
     Route: 048
  3. OSTELIN [Concomitant]
     Indication: OSTEOPOROSIS
     Dosage: 1000 IU, DAILY
     Route: 048
  4. OXIS TURBUHALER [Concomitant]
     Dosage: 6MCG/DOSE; 1-2 DOSES 12TH HOURLY PRN
     Route: 055
  5. PANADOL OSTEO [Concomitant]
     Dosage: 1330 MG, Q6H REGULARLY WHILST AWAKE
     Route: 048
  6. PREDNISOLONE [Concomitant]
     Dosage: 5 MG, DAILY
     Route: 048
  7. SPIRIVA [Concomitant]
     Dosage: 18 UG, DAILY INHALED THRU DEVICE
     Route: 055
  8. SYMBICORT [Concomitant]
     Dosage: 2 DF, 2X/DAY
     Route: 055
  9. THEOPHYLLINE [Concomitant]

REACTIONS (15)
  - Flushing [Recovered/Resolved with Sequelae]
  - Flushing [Recovered/Resolved with Sequelae]
  - Lip blister [Recovered/Resolved with Sequelae]
  - Pruritus [Recovered/Resolved with Sequelae]
  - Skin exfoliation [Recovered/Resolved with Sequelae]
  - Peripheral swelling [Recovered/Resolved with Sequelae]
  - Insomnia [Recovered/Resolved with Sequelae]
  - Photophobia [Recovered/Resolved with Sequelae]
  - Swelling face [Recovered/Resolved with Sequelae]
  - Swelling [Recovered/Resolved with Sequelae]
  - Hallucination [Recovered/Resolved with Sequelae]
  - Muscular weakness [Unknown]
  - Dyspnoea exertional [Unknown]
  - Asthenia [Unknown]
  - Peripheral swelling [Unknown]
